FAERS Safety Report 4765022-X (Version None)
Quarter: 2005Q3

REPORT INFORMATION
  Report Type: 
  Country: None (occurrence: None)
  Receive Date: 20050909
  Receipt Date: 20050830
  Transmission Date: 20060218
  Serious: Yes (Other)
  Sender: FDA-Public Use
  Company Number: US-BRISTOL-MYERS SQUIBB COMPANY-13094628

PATIENT
  Age: 66 Year
  Sex: Female

DRUGS (6)
  1. AMPHOTERICIN B [Suspect]
     Dosage: 1 MG WAS INITIATED, THEN 0.5 MG/KG AND CUMMULATIVE DOSE OF 158 MG THERAPY.
     Route: 042
     Dates: start: 19800101
  2. CYTOXAN [Concomitant]
     Dates: start: 19800101
  3. VINCRISTINE [Concomitant]
     Dates: start: 19800101
  4. PREDNISONE TAB [Concomitant]
     Dates: start: 19800101
  5. NAFCILLIN SODIUM [Concomitant]
     Dates: start: 19800101
  6. TOBRAMYCIN [Concomitant]
     Dates: start: 19800101

REACTIONS (1)
  - NEPHROGENIC DIABETES INSIPIDUS [None]
